FAERS Safety Report 6037605-0 (Version None)
Quarter: 2009Q1

REPORT INFORMATION
  Report Type: 
  Country: None (occurrence: None)
  Receive Date: 20090114
  Receipt Date: 20090108
  Transmission Date: 20090719
  Serious: Yes (Hospitalization, Other)
  Sender: FDA-Public Use
  Company Number: TR-ROXANE LABORATORIES, INC.-2009-RO-00040RO

PATIENT
  Age: 57 Year
  Sex: Female

DRUGS (8)
  1. LITHIUM CARBONATE [Suspect]
     Dosage: 300MG
  2. FUROSEMIDE [Suspect]
  3. LISINOPRIL [Suspect]
  4. ACETYLSALICYLIC ACID SRT [Suspect]
  5. ANTIDIABETIC TABLETS [Suspect]
     Route: 048
  6. SODIUM CHLORIDE [Concomitant]
     Route: 042
  7. OXYGEN [Concomitant]
  8. ATROPINE [Concomitant]
     Route: 042

REACTIONS (4)
  - ATRIOVENTRICULAR BLOCK COMPLETE [None]
  - CARDIOTOXICITY [None]
  - RENAL FAILURE [None]
  - THERAPEUTIC AGENT TOXICITY [None]
